FAERS Safety Report 13746573 (Version 2)
Quarter: 2017Q3

REPORT INFORMATION
  Report Type: Spontaneous
  Country: MO (occurrence: MO)
  Receive Date: 20170712
  Receipt Date: 20170728
  Transmission Date: 20171127
  Serious: Yes (Hospitalization, Other)
  Sender: FDA-Public Use
  Company Number: MO-GILEAD-2017-0282059

PATIENT
  Age: 57 Year
  Sex: Female

DRUGS (3)
  1. FUROSEMIDE. [Concomitant]
     Active Substance: FUROSEMIDE
     Indication: HYPERTENSION
     Dosage: UNK
  2. HARVONI [Suspect]
     Active Substance: LEDIPASVIR\SOFOSBUVIR
     Indication: CHRONIC HEPATITIS C
     Dosage: UNK
     Route: 048
     Dates: start: 20170613
  3. FUROSEMIDE. [Concomitant]
     Active Substance: FUROSEMIDE
     Indication: ASCITES

REACTIONS (1)
  - Haemorrhagic ascites [Not Recovered/Not Resolved]

NARRATIVE: CASE EVENT DATE: 20170705
